FAERS Safety Report 10049079 (Version 1)
Quarter: 2014Q1

REPORT INFORMATION
  Report Type: Spontaneous
  Country: PL (occurrence: PL)
  Receive Date: 20140331
  Receipt Date: 20140331
  Transmission Date: 20141002
  Serious: Yes (Death, Other)
  Sender: FDA-Public Use
  Company Number: PL-CELGENEUS-129-50794-14033153

PATIENT
  Sex: Male

DRUGS (1)
  1. VIDAZA [Suspect]
     Indication: CHRONIC MYELOMONOCYTIC LEUKAEMIA
     Route: 065

REACTIONS (2)
  - Multi-organ failure [Fatal]
  - Hepatic failure [Unknown]
